FAERS Safety Report 15300922 (Version 2)
Quarter: 2018Q4

REPORT INFORMATION
  Report Type: Not Available
  Country: US (occurrence: US)
  Receive Date: 20180821
  Receipt Date: 20181129
  Transmission Date: 20190204
  Serious: No
  Sender: FDA-Public Use
  Company Number: US-NEUROCRINE BIOSCIENCES INC.-2018NBI02361

PATIENT
  Sex: Female
  Weight: 47.67 kg

DRUGS (14)
  1. OMEPRAZOLE. [Concomitant]
     Active Substance: OMEPRAZOLE
     Dosage: 1 CAPSULE ONCE A DAY ONE HOUR BEFORE MEALS
  2. VITAMIN B12 [Concomitant]
     Active Substance: CYANOCOBALAMIN
     Dosage: 1000-400 MICROGRAM
  3. MIRTAZAPINE. [Concomitant]
     Active Substance: MIRTAZAPINE
     Dosage: AT BED TIME
  4. AMANTADINE. [Concomitant]
     Active Substance: AMANTADINE HYDROCHLORIDE
     Indication: AKATHISIA
     Route: 048
  5. ASPIRIN. [Concomitant]
     Active Substance: ASPIRIN
  6. ZOLOFT [Concomitant]
     Active Substance: SERTRALINE HYDROCHLORIDE
  7. INGREZZA [Suspect]
     Active Substance: VALBENAZINE
     Indication: TARDIVE DYSKINESIA
     Route: 048
     Dates: start: 20180613, end: 2018
  8. INGREZZA [Suspect]
     Active Substance: VALBENAZINE
     Dates: start: 2018
  9. LISINOPRIL. [Concomitant]
     Active Substance: LISINOPRIL
  10. ATORVASTATIN [Concomitant]
     Active Substance: ATORVASTATIN
  11. ATIVAN [Concomitant]
     Active Substance: LORAZEPAM
     Dosage: AS NEEDED
     Route: 048
  12. INGREZZA [Suspect]
     Active Substance: VALBENAZINE
     Dates: start: 2018, end: 2018
  13. LAMOTRIGINE. [Concomitant]
     Active Substance: LAMOTRIGINE
  14. ESTRACE [Concomitant]
     Active Substance: ESTRADIOL

REACTIONS (5)
  - Blood pressure increased [Recovered/Resolved]
  - Hot flush [Unknown]
  - Off label use [Unknown]
  - Tremor [Unknown]
  - Urinary retention [Recovered/Resolved]

NARRATIVE: CASE EVENT DATE: 2018
